FAERS Safety Report 5594132-2 (Version None)
Quarter: 2008Q1

REPORT INFORMATION
  Report Type: 
  Country: None (occurrence: None)
  Receive Date: 20080116
  Receipt Date: 20080105
  Transmission Date: 20080703
  Serious: Yes (Other)
  Sender: FDA-Public Use
  Company Number: PH-PFIZER INC-2008003242

PATIENT
  Age: 65 Year
  Sex: Female

DRUGS (2)
  1. ALDAZIDE [Suspect]
  2. DILTIAZEM [Suspect]

REACTIONS (2)
  - OEDEMA [None]
  - PAIN [None]
